FAERS Safety Report 10089149 (Version 1)
Quarter: 2014Q2

REPORT INFORMATION
  Report Type: Spontaneous
  Country: US (occurrence: US)
  Receive Date: 20140421
  Receipt Date: 20140421
  Transmission Date: 20141212
  Serious: Yes (Hospitalization, Other)
  Sender: FDA-Public Use
  Company Number: US-AMGEN-USASP2014028146

PATIENT
  Age: 79 Year
  Sex: Female

DRUGS (1)
  1. ENBREL [Suspect]
     Indication: RHEUMATOID ARTHRITIS
     Dosage: 50 MG, QWK
     Route: 065
     Dates: start: 20131013

REACTIONS (6)
  - Suicidal ideation [Recovered/Resolved]
  - Grief reaction [Recovered/Resolved]
  - Stress [Recovered/Resolved]
  - Cataract [Recovered/Resolved]
  - Hearing impaired [Not Recovered/Not Resolved]
  - Injection site pain [Not Recovered/Not Resolved]
